FAERS Safety Report 9245197 (Version 2)
Quarter: 2014Q1

REPORT INFORMATION
  Report Type: Spontaneous
  Country: US (occurrence: None)
  Receive Date: 20121130
  Receipt Date: 20131206
  Transmission Date: 20141002
  Serious: Yes (Hospitalization)
  Sender: FDA-Public Use
  Company Number: 359771

PATIENT
  Sex: Female

DRUGS (2)
  1. NOVOLOG [Suspect]
     Indication: TYPE 1 DIABETES MELLITUS
     Dosage: UNKNOWN, SUBCUTAN.-PUMP
     Route: 058
  2. NOVOLOG (INSULIN ASPART) SOLUTIONG FOR INJECTION, 100U/ML [Concomitant]

REACTIONS (3)
  - Drug ineffective [None]
  - Diabetic ketoacidosis [None]
  - Blood glucose increased [None]
